FAERS Safety Report 16341818 (Version 1)
Quarter: 2019Q2

REPORT INFORMATION
  Report Type: Spontaneous
  Country: US (occurrence: US)
  Receive Date: 20190522
  Receipt Date: 20190522
  Transmission Date: 20190711
  Serious: Yes (Other)
  Sender: FDA-Public Use
  Company Number: US-BAYER-2019-096073

PATIENT
  Age: 56 Year
  Sex: Female
  Weight: 68 kg

DRUGS (1)
  1. COPPERTONE OIL FREE SPF 30 [Suspect]
     Active Substance: AVOBENZONE\HOMOSALATE\OCTISALATE\OCTOCRYLENE\OXYBENZONE
     Indication: THERAPEUTIC SKIN CARE TOPICAL
     Dosage: UNK (USED ACCORDING TO LABEL DIRECTIONS DOSE)
     Route: 061

REACTIONS (7)
  - Syncope [Unknown]
  - Hypohidrosis [Unknown]
  - Feeling hot [Unknown]
  - Drug ineffective [Unknown]
  - Product physical issue [Unknown]
  - Skin discomfort [Unknown]
  - Product physical consistency issue [Unknown]
